FAERS Safety Report 9893319 (Version 2)
Quarter: 2014Q1

REPORT INFORMATION
  Report Type: Spontaneous
  Country: US (occurrence: US)
  Receive Date: 20140213
  Receipt Date: 20140326
  Transmission Date: 20141002
  Serious: No
  Sender: FDA-Public Use
  Company Number: US-JNJFOC-20140206007

PATIENT
  Sex: Male
  Weight: 147.42 kg

DRUGS (9)
  1. INVEGA [Suspect]
     Indication: BIPOLAR DISORDER
     Route: 048
  2. INVEGA [Suspect]
     Indication: BIPOLAR DISORDER
     Route: 048
  3. INVEGA [Suspect]
     Indication: BIPOLAR DISORDER
     Route: 048
     Dates: start: 2010
  4. INVEGA [Suspect]
     Indication: SCHIZOAFFECTIVE DISORDER
     Route: 048
     Dates: start: 2010
  5. INVEGA [Suspect]
     Indication: SCHIZOAFFECTIVE DISORDER
     Route: 048
  6. INVEGA [Suspect]
     Indication: SCHIZOAFFECTIVE DISORDER
     Route: 048
  7. DEPAKOTE [Concomitant]
     Indication: BIPOLAR DISORDER
     Route: 048
     Dates: start: 1998
  8. METFORMIN [Concomitant]
     Indication: DIABETES MELLITUS
     Dosage: 1000MG/500MG
     Route: 048
     Dates: start: 2008
  9. ZEBETA [Concomitant]
     Indication: HEART RATE INCREASED
     Route: 048
     Dates: start: 2000

REACTIONS (2)
  - Sensation of foreign body [Unknown]
  - Drug ineffective [Not Recovered/Not Resolved]
